FAERS Safety Report 15429965 (Version 2)
Quarter: 2019Q1

REPORT INFORMATION
  Report Type: Spontaneous
  Country: DK (occurrence: DK)
  Receive Date: 20180926
  Receipt Date: 20190117
  Transmission Date: 20190417
  Serious: Yes (Hospitalization)
  Sender: FDA-Public Use
  Company Number: DK-PFIZER INC-2018383840

PATIENT
  Age: 46 Year
  Sex: Male
  Weight: 105 kg

DRUGS (1)
  1. LOPID [Suspect]
     Active Substance: GEMFIBROZIL
     Indication: HYPERCHOLESTEROLAEMIA
     Dosage: 900 MG, 1X/DAY
     Route: 048
     Dates: start: 20171010, end: 20180827

REACTIONS (15)
  - Pneumonia [Recovered/Resolved]
  - Chest pain [Not Recovered/Not Resolved]
  - Oedema [Recovered/Resolved]
  - Amyloidosis [Not Recovered/Not Resolved]
  - Back pain [Not Recovered/Not Resolved]
  - Dyspnoea [Not Recovered/Not Resolved]
  - Echocardiogram abnormal [Not Recovered/Not Resolved]
  - Fatigue [Not Recovered/Not Resolved]
  - Dizziness [Not Recovered/Not Resolved]
  - Cardiomegaly [Not Recovered/Not Resolved]
  - Pain [Not Recovered/Not Resolved]
  - Protein urine [Recovering/Resolving]
  - Cardiac dysfunction [Not Recovered/Not Resolved]
  - Syncope [Not Recovered/Not Resolved]
  - Presyncope [Not Recovered/Not Resolved]

NARRATIVE: CASE EVENT DATE: 20171211
